FAERS Safety Report 9530334 (Version 1)
Quarter: 2013Q3

REPORT INFORMATION
  Report Type: Spontaneous
  Country: GB (occurrence: GB)
  Receive Date: 20130917
  Receipt Date: 20130917
  Transmission Date: 20140515
  Serious: Yes (Other)
  Sender: FDA-Public Use
  Company Number: GB-MYLANLABS-2013S1020041

PATIENT
  Age: 18 Year
  Sex: Female

DRUGS (2)
  1. AZATHIOPRINE [Suspect]
     Indication: PRODUCT USED FOR UNKNOWN INDICATION
  2. MESALAZINE [Concomitant]
     Indication: CROHN^S DISEASE
     Route: 048

REACTIONS (7)
  - Episcleritis [Unknown]
  - Malaise [Unknown]
  - Lip pain [Unknown]
  - Lip swelling [Unknown]
  - Mucosal inflammation [Unknown]
  - Pancreatitis [Unknown]
  - Rash [Unknown]
